FAERS Safety Report 19645306 (Version 1)
Quarter: 2021Q3

REPORT INFORMATION
  Report Type: Other
  Country: SA (occurrence: SA)
  Receive Date: 20210802
  Receipt Date: 20210802
  Transmission Date: 20211014
  Serious: Yes (Hospitalization)
  Sender: FDA-Public Use
  Company Number: SA-DEXPHARM-20211210

PATIENT
  Age: 56 Year
  Sex: Female

DRUGS (1)
  1. OMEPRAZOLE. [Suspect]
     Active Substance: OMEPRAZOLE
     Indication: GASTROOESOPHAGEAL REFLUX DISEASE
     Dosage: THE PATIENT HAD TAKEN OMEPRAZOLE FOR FOUR DAYS PRIOR TO BEING ADMITTED TO THE HOSPITAL AND WAS DI...

REACTIONS (1)
  - Hyponatraemia [Recovering/Resolving]
